FAERS Safety Report 12587751 (Version 1)
Quarter: 2016Q3

REPORT INFORMATION
  Report Type: Report from Study
  Country: CA (occurrence: CA)
  Receive Date: 20160725
  Receipt Date: 20160725
  Transmission Date: 20161109
  Serious: Yes (Other)
  Sender: FDA-Public Use
  Company Number: CA-JNJFOC-20160717817

PATIENT
  Age: 21 Year
  Sex: Male
  Weight: 75 kg

DRUGS (3)
  1. AZITHROMYCIN ANHYDROUS. [Concomitant]
     Active Substance: AZITHROMYCIN ANHYDROUS
     Route: 048
  2. CEFIXIME. [Concomitant]
     Active Substance: CEFIXIME
     Route: 048
  3. REMICADE [Suspect]
     Active Substance: INFLIXIMAB
     Indication: CROHN^S DISEASE
     Route: 042
     Dates: start: 20120406

REACTIONS (1)
  - Chlamydial infection [Not Recovered/Not Resolved]

NARRATIVE: CASE EVENT DATE: 20160718
